FAERS Safety Report 6183042-8 (Version None)
Quarter: 2009Q2

REPORT INFORMATION
  Report Type: 
  Country: None (occurrence: None)
  Receive Date: 20090507
  Receipt Date: 20090430
  Transmission Date: 20091009
  Serious: Yes (Other)
  Sender: FDA-Public Use
  Company Number: US-ASTRAZENECA-2009UW07028

PATIENT
  Age: 49 Year
  Sex: Male
  Weight: 116.1 kg

DRUGS (1)
  1. CRESTOR [Suspect]
     Indication: HYPERCHOLESTEROLAEMIA
     Route: 048
     Dates: start: 20081010, end: 20081101

REACTIONS (2)
  - ERECTILE DYSFUNCTION [None]
  - RASH [None]
